FAERS Safety Report 13693887 (Version 2)
Quarter: 2017Q2

REPORT INFORMATION
  Report Type: Spontaneous
  Country: FR (occurrence: FR)
  Receive Date: 20170627
  Receipt Date: 20170627
  Transmission Date: 20170830
  Serious: Yes (Other)
  Sender: FDA-Public Use
  Company Number: FR-BAYER-2017-121091

PATIENT
  Age: 36 Year
  Sex: Female

DRUGS (1)
  1. MIRENA [Suspect]
     Active Substance: LEVONORGESTREL
     Indication: CONTRACEPTION
     Dosage: 20 MCG/24HR, CONT
     Route: 015
     Dates: start: 20091201

REACTIONS (21)
  - Sleep disorder [Unknown]
  - Anxiety [Unknown]
  - Vaginal haemorrhage [Unknown]
  - Paraesthesia [Unknown]
  - Hypertrichosis [Unknown]
  - Stress [Unknown]
  - Asthenia [Unknown]
  - Headache [Unknown]
  - Breast pain [Unknown]
  - Abnormal weight gain [Unknown]
  - Pelvic pain [Unknown]
  - Loss of libido [Unknown]
  - Urinary tract infection [Unknown]
  - Vertigo [Unknown]
  - Back pain [Unknown]
  - Visual impairment [Unknown]
  - Dyspepsia [Unknown]
  - Alopecia [Unknown]
  - Fluid retention [Unknown]
  - Aggression [Unknown]
  - Depression [Unknown]

NARRATIVE: CASE EVENT DATE: 201002
